FAERS Safety Report 24396563 (Version 1)
Quarter: 2024Q4

REPORT INFORMATION
  Report Type: Spontaneous
  Country: US (occurrence: None)
  Receive Date: 20241003
  Receipt Date: 20241003
  Transmission Date: 20250115
  Serious: Yes (unspecified)
  Sender: Public
  Company Number: None

PATIENT
  Age: 44 Year
  Sex: Female
  Weight: 96.6 kg

DRUGS (1)
  1. ORENCIA [Suspect]
     Active Substance: ABATACEPT
     Indication: Rheumatoid arthritis
     Dosage: OTHER FREQUENCY : WEEKLY;?
     Route: 058
     Dates: start: 20240613

REACTIONS (3)
  - Incorrect route of product administration [None]
  - Injection [None]
  - Myalgia [None]

NARRATIVE: CASE EVENT DATE: 20241003
